FAERS Safety Report 7776968-2 (Version None)
Quarter: 2011Q3

REPORT INFORMATION
  Report Type: 
  Country: None (occurrence: None)
  Receive Date: 20110926
  Receipt Date: 20110912
  Transmission Date: 20111222
  Serious: Yes (Other)
  Sender: FDA-Public Use
  Company Number: GB-BAYER-2011-087438

PATIENT
  Age: 53 Year
  Sex: Female

DRUGS (7)
  1. NAPROXEN SODIUM [Suspect]
     Indication: JOINT INJURY
     Dosage: UNK
     Route: 048
     Dates: start: 20110619, end: 20110630
  2. CHLORAMPHENICOL [Suspect]
     Indication: UVEITIS
  3. ENALAPRIL MALEATE [Concomitant]
  4. BENDROFLUMETHIAZIDE [Concomitant]
     Dosage: UNK
     Dates: start: 20040101
  5. PREMPAK [Concomitant]
  6. HYPROMELLOSE [Concomitant]
  7. CHLORAMPHENICOL [Suspect]
     Indication: OCULAR HYPERAEMIA
     Dosage: UNK
     Route: 047
     Dates: start: 20110706

REACTIONS (4)
  - PANCYTOPENIA [None]
  - MALAISE [None]
  - DIZZINESS [None]
  - ANAEMIA [None]
